FAERS Safety Report 5982926-0 (Version None)
Quarter: 2008Q4

REPORT INFORMATION
  Report Type: 
  Country: None (occurrence: None)
  Receive Date: 20081205
  Receipt Date: 20081205
  Transmission Date: 20090506
  Serious: No
  Sender: FDA-Public Use
  Company Number: None

PATIENT
  Age: 15 Year
  Sex: Female
  Weight: 59.8748 kg

DRUGS (1)
  1. ALAVERT D-12 EXTENDED RELEASE WYETH [Suspect]
     Dosage: 1 TABLET EVERY 12 HOURS PO
     Route: 048
     Dates: start: 20081128, end: 20081130

REACTIONS (1)
  - HALLUCINATIONS, MIXED [None]
